FAERS Safety Report 16342860 (Version 1)
Quarter: 2019Q3

REPORT INFORMATION
  Report Type: Spontaneous
  Country: US (occurrence: US)
  Receive Date: 20190521
  Receipt Date: 20190521
  Transmission Date: 20191004
  Serious: Yes (Life-Threatening, Hospitalization, Other)
  Sender: FDA-Public Use
  Company Number: None

PATIENT
  Age: 72 Year
  Sex: Female
  Weight: 65.54 kg

DRUGS (2)
  1. BEVACIZUMAB. [Suspect]
     Active Substance: BEVACIZUMAB
     Indication: DRUG RESISTANCE
     Dosage: ?          OTHER FREQUENCY:EVERY 14 DAYS;?
     Route: 042
     Dates: start: 20190410, end: 20190410
  2. BEVACIZUMAB. [Suspect]
     Active Substance: BEVACIZUMAB
     Indication: OVARIAN CANCER RECURRENT
     Dosage: ?          OTHER FREQUENCY:EVERY 14 DAYS;?
     Route: 042
     Dates: start: 20190410, end: 20190410

REACTIONS (10)
  - Depressed level of consciousness [None]
  - Peritonitis [None]
  - Nausea [None]
  - Jejunal perforation [None]
  - Lethargy [None]
  - Speech disorder [None]
  - Mental status changes [None]
  - Sepsis [None]
  - Vomiting [None]
  - Small intestinal obstruction [None]

NARRATIVE: CASE EVENT DATE: 20190429
